FAERS Safety Report 5466906-X (Version None)
Quarter: 2007Q3

REPORT INFORMATION
  Report Type: 
  Country: None (occurrence: None)
  Receive Date: 20070925
  Receipt Date: 20070914
  Transmission Date: 20080115
  Serious: Yes (Hospitalization)
  Sender: FDA-Public Use
  Company Number: PHBS2007CH15121

PATIENT
  Age: 40 Year
  Sex: Female

DRUGS (5)
  1. LEPONEX [Suspect]
     Indication: SCHIZOAFFECTIVE DISORDER
     Dosage: 25 MG/DAY
     Dates: start: 20060816, end: 20060901
  2. HALDOL [Concomitant]
     Indication: SCHIZOAFFECTIVE DISORDER
     Dosage: 4 MG/DAY
     Dates: start: 20060801
  3. QUILONORM [Concomitant]
     Dosage: 450 MG/DAY
     Dates: start: 20060801
  4. AKINETON [Concomitant]
     Dosage: 4 MG/DAY
     Dates: start: 20060801
  5. EUTHYROX [Concomitant]
     Dosage: 125 UG/DAY

REACTIONS (10)
  - CHILLS [None]
  - COUGH [None]
  - HEADACHE [None]
  - LUNG INFILTRATION [None]
  - MACROPHAGE ACTIVATION [None]
  - PLEURAL EFFUSION [None]
  - PULMONARY ALVEOLAR HAEMORRHAGE [None]
  - PULMONARY HAEMOSIDEROSIS [None]
  - PYREXIA [None]
  - VASCULITIS [None]
